FAERS Safety Report 23636235 (Version 1)
Quarter: 2024Q1

REPORT INFORMATION
  Report Type: Spontaneous
  Country: US (occurrence: None)
  Receive Date: 20240314
  Receipt Date: 20240314
  Transmission Date: 20240410
  Serious: Yes (Other)
  Sender: FDA-Public Use
  Company Number: None

PATIENT
  Sex: 0

DRUGS (1)
  1. FILSPARI [Suspect]
     Active Substance: SPARSENTAN
     Dates: start: 20240214

REACTIONS (1)
  - Vaginal haemorrhage [None]

NARRATIVE: CASE EVENT DATE: 20240221
